FAERS Safety Report 6242517-3 (Version None)
Quarter: 2009Q2

REPORT INFORMATION
  Report Type: 
  Country: None (occurrence: None)
  Receive Date: 20090622
  Receipt Date: 20090622
  Transmission Date: 20091009
  Serious: No
  Sender: FDA-Public Use
  Company Number: None

PATIENT
  Age: 64 Year
  Sex: Female
  Weight: 56.6996 kg

DRUGS (1)
  1. ZICAM RAPIDMELTS COLD REMEDY ZICAM [Suspect]
     Indication: NASOPHARYNGITIS
     Dates: start: 20090523, end: 20090523

REACTIONS (2)
  - AGEUSIA [None]
  - NO REACTION ON PREVIOUS EXPOSURE TO DRUG [None]
